FAERS Safety Report 4373618-2 (Version None)
Quarter: 2004Q1

REPORT INFORMATION
  Report Type: 
  Country: None (occurrence: None)
  Receive Date: 20040305
  Receipt Date: 20040123
  Transmission Date: 20041129
  Serious: Yes (Other)
  Sender: FDA-Public Use
  Company Number: 2003UW17311

PATIENT

DRUGS (1)
  1. CRESTOR [Suspect]

REACTIONS (2)
  - NASAL CONGESTION [None]
  - THROAT IRRITATION [None]
